FAERS Safety Report 14012249 (Version 2)
Quarter: 2017Q4

REPORT INFORMATION
  Report Type: Report from Study
  Country: US (occurrence: US)
  Receive Date: 20170926
  Receipt Date: 20171031
  Transmission Date: 20180321
  Serious: Yes (Death, Hospitalization, Other)
  Sender: FDA-Public Use
  Company Number: US-TAKEDA-2017TUS019938

PATIENT
  Age: 86 Year
  Sex: Male

DRUGS (1)
  1. COLCHICINE. [Suspect]
     Active Substance: COLCHICINE
     Indication: GOUTY ARTHRITIS
     Dosage: 0.6 MG, QD
     Route: 048
     Dates: start: 201409

REACTIONS (2)
  - Death [Fatal]
  - Aortic dissection [Unknown]

NARRATIVE: CASE EVENT DATE: 201709
